FAERS Safety Report 5088088-9 (Version None)
Quarter: 2006Q3

REPORT INFORMATION
  Report Type: 
  Country: None (occurrence: None)
  Receive Date: 20060823
  Receipt Date: 20060823
  Transmission Date: 20061208
  Serious: Yes (Hospitalization)
  Sender: FDA-Public Use
  Company Number: None

PATIENT
  Age: 80 Year
  Sex: Male
  Weight: 67.7 kg

DRUGS (4)
  1. NPH INSULIN [Suspect]
     Indication: DIABETES MELLITUS NON-INSULIN-DEPENDENT
     Dosage: 50 UNITS BID
  2. PIOGLITAZONE HCL [Suspect]
     Dosage: 45 MG PO QD
     Route: 048
  3. ROSIGLITAZONE [Suspect]
     Dosage: 8 MG PO QD
     Route: 048
  4. METFORMIN [Suspect]
     Dosage: 1000 MG PO BID
     Route: 048

REACTIONS (3)
  - CONFUSIONAL STATE [None]
  - HYPOGLYCAEMIA [None]
  - MENTAL STATUS CHANGES [None]
